FAERS Safety Report 11728420 (Version 2)
Quarter: 2015Q4

REPORT INFORMATION
  Report Type: Report from Study
  Country: BE (occurrence: BE)
  Receive Date: 20151112
  Receipt Date: 20151221
  Transmission Date: 20160304
  Serious: Yes (Hospitalization, Other)
  Sender: FDA-Public Use
  Company Number: BE-BAYER-2015-457789

PATIENT
  Sex: Male

DRUGS (4)
  1. DAFALGAN CODEINE [Concomitant]
     Active Substance: ACETAMINOPHEN\CODEINE PHOSPHATE
  2. STIVARGA [Suspect]
     Active Substance: REGORAFENIB
     Indication: COLORECTAL CANCER
     Dosage: 160 MG, QD
     Route: 048
     Dates: start: 20150926, end: 2015
  3. STIVARGA [Suspect]
     Active Substance: REGORAFENIB
     Indication: COLORECTAL CANCER
     Dosage: 120 MG, QD
     Route: 048
     Dates: start: 2015
  4. STIVARGA [Suspect]
     Active Substance: REGORAFENIB
     Indication: COLORECTAL CANCER
     Dosage: UNK
     Dates: end: 20151017

REACTIONS (9)
  - Weight decreased [None]
  - Sinusitis [None]
  - Fatigue [None]
  - Lung disorder [Recovering/Resolving]
  - Decreased appetite [None]
  - Hypertension [None]
  - Diarrhoea [None]
  - General physical health deterioration [None]
  - Obstructive uropathy [Not Recovered/Not Resolved]

NARRATIVE: CASE EVENT DATE: 20151025
